FAERS Safety Report 13191858 (Version 3)
Quarter: 2017Q1

REPORT INFORMATION
  Report Type: Spontaneous
  Country: PL (occurrence: PL)
  Receive Date: 20170207
  Receipt Date: 20170331
  Transmission Date: 20170428
  Serious: Yes (Other)
  Sender: FDA-Public Use
  Company Number: PL-EMD SERONO-8139245

PATIENT
  Age: 5 Year
  Sex: Female
  Weight: 16 kg

DRUGS (1)
  1. REBIF [Suspect]
     Active Substance: INTERFERON BETA-1A
     Indication: MULTIPLE SCLEROSIS
     Dosage: PATIENT RECEIVED 20 PERCENT DOSE.
     Route: 058
     Dates: start: 20170112

REACTIONS (4)
  - Pyrexia [Recovered/Resolved]
  - Chills [Recovered/Resolved]
  - Delirium [Recovered/Resolved]
  - Headache [Recovered/Resolved]

NARRATIVE: CASE EVENT DATE: 20170118
